FAERS Safety Report 10968903 (Version 1)
Quarter: 2015Q1

REPORT INFORMATION
  Report Type: Spontaneous
  Country: US (occurrence: US)
  Receive Date: 20150331
  Receipt Date: 20150331
  Transmission Date: 20150721
  Serious: Yes (Death, Hospitalization, Other)
  Sender: FDA-Public Use
  Company Number: US-AMGEN-USASP2015023663

PATIENT
  Age: 57 Year
  Sex: Male

DRUGS (4)
  1. BLINCYTO [Suspect]
     Active Substance: BLINATUMOMAB
     Indication: PRODUCT USED FOR UNKNOWN INDICATION
     Dosage: 28 MUG, UNK
     Route: 065
     Dates: start: 20150226, end: 20150308
  2. DEXAMETHASONE. [Concomitant]
     Active Substance: DEXAMETHASONE
  3. MICAFUNGIN [Concomitant]
     Active Substance: MICAFUNGIN
  4. FLORINEF ACETATE [Concomitant]
     Active Substance: FLUDROCORTISONE ACETATE
     Dosage: UNK

REACTIONS (22)
  - Incontinence [Not Recovered/Not Resolved]
  - Neuropathy peripheral [Not Recovered/Not Resolved]
  - No therapeutic response [Unknown]
  - Gastrointestinal disorder [Unknown]
  - Splenomegaly [Unknown]
  - Hyperhidrosis [Unknown]
  - Interstitial lung disease [Fatal]
  - Headache [Recovered/Resolved]
  - Pyrexia [Unknown]
  - Agitation [Unknown]
  - Malnutrition [Unknown]
  - Electrolyte imbalance [Unknown]
  - Ileus [Not Recovered/Not Resolved]
  - Nausea [Not Recovered/Not Resolved]
  - Vomiting [Not Recovered/Not Resolved]
  - Cytokine release syndrome [Not Recovered/Not Resolved]
  - Paraesthesia [Unknown]
  - Abdominal pain [Unknown]
  - Cardiomegaly [Unknown]
  - Pancytopenia [Unknown]
  - Pulmonary oedema [Unknown]
  - Leukocytosis [Unknown]

NARRATIVE: CASE EVENT DATE: 20150226
